FAERS Safety Report 10186492 (Version 1)
Quarter: 2014Q2

REPORT INFORMATION
  Report Type: Spontaneous
  Country: US (occurrence: US)
  Receive Date: 20140521
  Receipt Date: 20140521
  Transmission Date: 20141212
  Serious: No
  Sender: FDA-Public Use
  Company Number: US-009507513-1405USA010705

PATIENT
  Sex: Female

DRUGS (5)
  1. CLARITIN ORAL SOLUTION [Suspect]
     Indication: SEASONAL ALLERGY
     Dosage: UNK, UNKNOWN
     Route: 048
     Dates: start: 2014
  2. CLARITIN ORAL SOLUTION [Suspect]
     Indication: RESPIRATORY TRACT CONGESTION
  3. CLARITIN ORAL SOLUTION [Suspect]
     Indication: LACRIMATION INCREASED
  4. CLARITIN ORAL SOLUTION [Suspect]
     Indication: OCULAR HYPERAEMIA
  5. CLARITIN ORAL SOLUTION [Suspect]
     Indication: RHINORRHOEA

REACTIONS (1)
  - Insomnia [Unknown]
